APPROVED DRUG PRODUCT: BENZONATATE
Active Ingredient: BENZONATATE
Strength: 100MG
Dosage Form/Route: CAPSULE;ORAL
Application: A040795 | Product #001
Applicant: NESHER PHARMACEUTICALS USA LLC
Approved: Oct 31, 2007 | RLD: No | RS: No | Type: DISCN